FAERS Safety Report 23458120 (Version 1)
Quarter: 2024Q1

REPORT INFORMATION
  Report Type: Spontaneous
  Country: US (occurrence: US)
  Receive Date: 20240130
  Receipt Date: 20240130
  Transmission Date: 20240410
  Serious: Yes (Other)
  Sender: FDA-Public Use
  Company Number: US-MYLANLABS-2023M1133090

PATIENT
  Sex: Female

DRUGS (2)
  1. TYRVAYA [Suspect]
     Active Substance: VARENICLINE TARTRATE
     Indication: Dry eye
     Dosage: UNK, BID
     Route: 045
     Dates: start: 202310
  2. RESTASIS [Concomitant]
     Active Substance: CYCLOSPORINE
     Dosage: UNK
     Route: 065

REACTIONS (7)
  - Eye haematoma [Unknown]
  - Burning sensation [Unknown]
  - Sneezing [Unknown]
  - Throat irritation [Unknown]
  - Instillation site irritation [Unknown]
  - Product delivery mechanism issue [Unknown]
  - Product quality issue [Unknown]
